FAERS Safety Report 9465454 (Version 2)
Quarter: 2013Q4

REPORT INFORMATION
  Report Type: Spontaneous
  Country: US (occurrence: US)
  Receive Date: 20130820
  Receipt Date: 20131004
  Transmission Date: 20140711
  Serious: No
  Sender: FDA-Public Use
  Company Number: US-009507513-1308USA006937

PATIENT
  Age: 26 Year
  Sex: Female
  Weight: 68.48 kg

DRUGS (1)
  1. IMPLANON [Suspect]
     Indication: CONTRACEPTION
     Dosage: UNK
     Route: 059
     Dates: start: 20111020

REACTIONS (2)
  - Exposure during pregnancy [Unknown]
  - Inappropriate schedule of drug administration [Unknown]
